FAERS Safety Report 11759798 (Version 1)
Quarter: 2015Q4

REPORT INFORMATION
  Report Type: Spontaneous
  Country: CA (occurrence: CA)
  Receive Date: 20151120
  Receipt Date: 20151120
  Transmission Date: 20160304
  Serious: Yes (Other)
  Sender: FDA-Public Use
  Company Number: CA-DEP_13061_2015

PATIENT
  Sex: Female

DRUGS (1)
  1. CAMBIA (DICLOFENAC POTASSIUM) [Suspect]
     Active Substance: DICLOFENAC POTASSIUM
     Indication: PRODUCT USED FOR UNKNOWN INDICATION
     Dosage: 50 MG/PACKET, 1 IN 1 DAY

REACTIONS (1)
  - Optic neuritis [Unknown]
